FAERS Safety Report 20984491 (Version 2)
Quarter: 2022Q3

REPORT INFORMATION
  Report Type: Report from Study
  Country: CH (occurrence: CH)
  Receive Date: 20220621
  Receipt Date: 20220713
  Transmission Date: 20221027
  Serious: Yes (Hospitalization, Disabling, Other)
  Sender: FDA-Public Use
  Company Number: CH-ABBVIE-22K-151-4439354-00

PATIENT
  Age: 66 Year
  Sex: Male
  Weight: 71 kg

DRUGS (13)
  1. HUMIRA [Suspect]
     Active Substance: ADALIMUMAB
     Indication: Psoriasis
     Route: 058
     Dates: start: 20160222, end: 201710
  2. SECUKINUMAB [Suspect]
     Active Substance: SECUKINUMAB
     Indication: Psoriatic arthropathy
     Route: 065
     Dates: start: 20171023
  3. MEDROL [Concomitant]
     Active Substance: METHYLPREDNISOLONE
     Indication: Tinnitus
     Route: 048
     Dates: start: 20161019, end: 20161104
  4. PANTOPRAZOLE SODIUM [Concomitant]
     Active Substance: PANTOPRAZOLE SODIUM
     Indication: Tinnitus
     Route: 048
     Dates: start: 20161019, end: 20161104
  5. PANTOPRAZOLE SODIUM [Concomitant]
     Active Substance: PANTOPRAZOLE SODIUM
     Indication: Prophylaxis
  6. PANTOPRAZOLE SODIUM [Concomitant]
     Active Substance: PANTOPRAZOLE SODIUM
     Indication: Gastrooesophageal reflux disease
     Route: 048
     Dates: start: 20170101
  7. SALICYL [Concomitant]
     Indication: Product used for unknown indication
     Dosage: VASELINE 20%
     Dates: start: 20170512
  8. PREDNICARBATUM [Concomitant]
     Indication: Skin disorder
     Dates: start: 20171204
  9. CLOBETASOL PROPIONATE [Concomitant]
     Active Substance: CLOBETASOL PROPIONATE
     Indication: Skin disorder
     Dates: start: 20171204
  10. CICLOPIROX OLAMINE [Concomitant]
     Active Substance: CICLOPIROX OLAMINE
     Indication: Product used for unknown indication
     Dates: start: 20171204
  11. VIMOVO [Concomitant]
     Active Substance: ESOMEPRAZOLE MAGNESIUM\NAPROXEN
     Indication: Arthritis
     Route: 048
     Dates: start: 20170915
  12. TADALAFIL [Concomitant]
     Active Substance: TADALAFIL
     Indication: Erectile dysfunction
     Dates: start: 20181009
  13. NAPROXEN AND ESOMEPRAZOLE MAGNESIUM [Concomitant]
     Active Substance: ESOMEPRAZOLE MAGNESIUM\NAPROXEN
     Indication: Product used for unknown indication
     Dosage: NAPROXEN AND ESOMEPRAZOL (ESOMEPRAZOL MAGNESIUMTRIHYDRAT (VIMOVO))

REACTIONS (6)
  - Bladder neoplasm [Recovered/Resolved with Sequelae]
  - Bladder mass [Unknown]
  - Prostatomegaly [Unknown]
  - Erectile dysfunction [Not Recovered/Not Resolved]
  - Hypercholesterolaemia [Not Recovered/Not Resolved]
  - Arrhythmia [Not Recovered/Not Resolved]

NARRATIVE: CASE EVENT DATE: 20191216
